FAERS Safety Report 5746368-5 (Version None)
Quarter: 2008Q2

REPORT INFORMATION
  Report Type: 
  Country: None (occurrence: None)
  Receive Date: 20080522
  Receipt Date: 20080516
  Transmission Date: 20081010
  Serious: Yes (Hospitalization)
  Sender: FDA-Public Use
  Company Number: US-BRISTOL-MYERS SQUIBB COMPANY-14194757

PATIENT
  Age: 58 Year
  Sex: Male

DRUGS (19)
  1. CARBOPLATIN [Suspect]
     Indication: HEAD AND NECK CANCER
     Dosage: LAST DOSE (263MG) PRIOR RO SAE ON 29APR08. TOTAL DOSE 6. INITIAL DOSE 208MG.
     Route: 042
     Dates: start: 20080318
  2. ERBITUX [Suspect]
     Indication: HEAD AND NECK CANCER
     Dosage: LAST DOSE (490MG) PRIOR TO SAE ON 29APR08.INITIAL DOSE 804MG. TOTAL DOSE 7.
     Route: 042
     Dates: start: 20080312
  3. ABRAXANE [Suspect]
     Indication: HEAD AND NECK CANCER
     Dosage: LAST DOSE (40MG) PRIOR TO SAE ON 29APR08. TOTAL DOSE 6. INITIAL DOSE 40MG.
     Route: 042
     Dates: start: 20080318
  4. RADIATION THERAPY [Suspect]
     Indication: HEAD AND NECK CANCER
     Dosage: LAST DOSE(2GY)PRIOR TO SAE ON 5MAY08.TOTAL DOSE 34. INITIAL DOSE 2GY (2GY/5DAYS A WEEK*7WEEKS).
     Dates: start: 20080311
  5. METHADONE HCL [Concomitant]
     Indication: PAIN
  6. DILAUDID [Concomitant]
     Indication: PAIN
     Dates: start: 20080422
  7. LORAZEPAM [Concomitant]
     Indication: NAUSEA
     Dosage: 1MG EVERY 4HRS AS NEEDED.
     Route: 048
     Dates: start: 20080312, end: 20080506
  8. BENZACLIN [Concomitant]
     Route: 061
     Dates: start: 20080325, end: 20080506
  9. PROCHLORPERAZINE MALEATE [Concomitant]
     Indication: NAUSEA
     Dosage: 10MG, Q 6HRS AS NEEDED.
     Route: 048
  10. FLUCONAZOLE [Concomitant]
     Route: 048
     Dates: start: 20080324, end: 20080506
  11. FENTANYL TRANSDERMAL SYSTEM [Concomitant]
     Indication: PAIN
     Dosage: 50 MCG/HR
     Dates: start: 20080401, end: 20080506
  12. MINOCYCLINE HCL [Concomitant]
     Route: 048
     Dates: start: 20080429
  13. MORPHINE [Concomitant]
     Indication: PAIN
     Route: 048
     Dates: start: 20080414, end: 20080506
  14. OXYCODONE HCL [Concomitant]
     Route: 048
     Dates: start: 20080408, end: 20080506
  15. ZOFRAN [Concomitant]
     Indication: NAUSEA
     Dosage: Q 8HRS
     Route: 048
  16. MILK OF MAGNESIA [Concomitant]
     Indication: CONSTIPATION
     Route: 048
     Dates: start: 20080421, end: 20080506
  17. NYSTATIN [Concomitant]
     Route: 048
     Dates: start: 20080430, end: 20080506
  18. ORAL SWISH [Concomitant]
     Indication: ORAL PAIN
     Dosage: Q 4 HRS.SWISH AND SPIT (DIPHENHYDRAMINE/KAOPECTATE/LIDOCAINE)
     Dates: start: 20080401, end: 20080506
  19. OXYCET [Concomitant]

REACTIONS (2)
  - DERMATITIS [None]
  - MUCOSAL INFLAMMATION [None]
